FAERS Safety Report 5476675-5 (Version None)
Quarter: 2007Q4

REPORT INFORMATION
  Report Type: 
  Country: None (occurrence: None)
  Receive Date: 20071001
  Receipt Date: 20070920
  Transmission Date: 20080405
  Serious: Yes (Other)
  Sender: FDA-Public Use
  Company Number: 107#03#2007-03703

PATIENT
  Age: 50 Year
  Sex: Male

DRUGS (3)
  1. MIRTAZAPINE [Suspect]
     Indication: DRUG USE FOR UNKNOWN INDICATION
     Dosage: 15 MG
  2. AMITRIPTYLINE HCL [Concomitant]
  3. CITALOPRAM [Concomitant]

REACTIONS (1)
  - TEMPORAL LOBE EPILEPSY [None]
